FAERS Safety Report 19593094 (Version 1)
Quarter: 2021Q3

REPORT INFORMATION
  Report Type: Spontaneous
  Country: FR (occurrence: FR)
  Receive Date: 20210722
  Receipt Date: 20210722
  Transmission Date: 20211014
  Serious: Yes (Hospitalization)
  Sender: FDA-Public Use
  Company Number: FR-SUN PHARMACEUTICAL INDUSTRIES LTD-2021RR-305396

PATIENT
  Age: 56 Year
  Sex: Female
  Weight: 71 kg

DRUGS (19)
  1. AMOXICILLIN. [Suspect]
     Active Substance: AMOXICILLIN
     Indication: HELICOBACTER DUODENAL ULCER
     Dosage: 1 GRAM, 500MG 2/J, UNK
     Route: 048
     Dates: start: 20210525, end: 20210608
  2. SMECTA [Concomitant]
     Active Substance: MONTMORILLONITE
     Indication: DIARRHOEA
     Dosage: 1 DOSAGE FORM, 1 SACHET IN CASE OF DIARRHEA, MAXIMUM 3 / DAY
     Route: 048
  3. DAFLON [Concomitant]
     Indication: PRODUCT USED FOR UNKNOWN INDICATION
     Dosage: 6 DOSAGE FORM, UNK
     Route: 048
  4. TIORFAN [Concomitant]
     Active Substance: RACECADOTRIL
     Indication: DIARRHOEA
     Dosage: 1 DOSAGE FORM, 1 TAB IN CASE OF DIARRHEA, IF SMECTA INSUFFICIENT, MAXIMUM 3 / DAY
     Route: 048
  5. OFEV [Concomitant]
     Active Substance: NINTEDANIB
     Indication: PRODUCT USED FOR UNKNOWN INDICATION
     Dosage: 2 DOSAGE FORM, UNK
     Route: 048
  6. EXFORGE [Concomitant]
     Active Substance: AMLODIPINE BESYLATE\VALSARTAN
     Indication: PRODUCT USED FOR UNKNOWN INDICATION
     Dosage: 1 DOSAGE FORM, UNK
     Route: 048
  7. PANTOPRAZOLE [Suspect]
     Active Substance: PANTOPRAZOLE
     Indication: HELICOBACTER DUODENAL ULCER
     Dosage: 40 MILLIGRAM, UNK
     Route: 048
     Dates: start: 20210525, end: 20210610
  8. FUROSEMIDE. [Concomitant]
     Active Substance: FUROSEMIDE
     Indication: PRODUCT USED FOR UNKNOWN INDICATION
     Dosage: 250 MILLIGRAM, UNK
     Route: 048
  9. PARACETAMOL [Concomitant]
     Active Substance: ACETAMINOPHEN
     Indication: PRODUCT USED FOR UNKNOWN INDICATION
     Dosage: 1 GRAM, UNK, 1?3 / D IF PAIN
     Route: 048
  10. UN?ALFA 0,25 MICROGRAMME, CAPSULE ORALE [Concomitant]
     Active Substance: ALFACALCIDOL
     Indication: PRODUCT USED FOR UNKNOWN INDICATION
     Dosage: 1 DOSAGE FORM, UNK
     Route: 048
  11. METRONIDAZOLE. [Suspect]
     Active Substance: METRONIDAZOLE
     Indication: HELICOBACTER DUODENAL ULCER
     Dosage: 500 MILLIGRAM, 250MG 2 / D
     Route: 048
     Dates: start: 20210525, end: 20210608
  12. TITANOREINE [Concomitant]
     Active Substance: CARRAGEENAN\TITANIUM\ZINC
     Indication: PRODUCT USED FOR UNKNOWN INDICATION
     Dosage: 1 DOSAGE FORM, 1 TO 2 SUPPOSITORIES PER DAY. MAX 7 DAYS
     Route: 054
  13. IXPRIM [Concomitant]
     Active Substance: ACETAMINOPHEN\TRAMADOL HYDROCHLORIDE
     Indication: PRODUCT USED FOR UNKNOWN INDICATION
     Dosage: UNK, 1?3 / D IF PAIN
     Route: 048
  14. ZYMA D2 80 000 UI, SOLUTION BUVABLE EN AMPOULE [Concomitant]
     Indication: PRODUCT USED FOR UNKNOWN INDICATION
     Dosage: UNK, 1 AMPOULE EVERY 2 WEEKS
     Route: 048
  15. NEBIVOLOL. [Concomitant]
     Active Substance: NEBIVOLOL
     Indication: PRODUCT USED FOR UNKNOWN INDICATION
     Dosage: 2.5 MILLIGRAM, UNK
     Route: 048
  16. OROCAL 500 MG, COMPRIME [Concomitant]
     Indication: PRODUCT USED FOR UNKNOWN INDICATION
     Dosage: 2 DOSAGE FORM, UNK
     Route: 048
  17. CLARITHROMYCIN. [Suspect]
     Active Substance: CLARITHROMYCIN
     Indication: HELICOBACTER DUODENAL ULCER
     Dosage: 500 MILLIGRAM, 250MG 2 / D
     Route: 048
     Dates: start: 20210525, end: 20210608
  18. ACIDE FOLIQUE [Concomitant]
     Active Substance: FOLIC ACID
     Indication: PRODUCT USED FOR UNKNOWN INDICATION
     Dosage: 5 MILLIGRAM, UNK
     Route: 048
  19. RIMIFON [Concomitant]
     Active Substance: ISONIAZID
     Indication: LATENT TUBERCULOSIS
     Dosage: UNK
     Route: 048

REACTIONS (1)
  - Thrombocytopenia [Recovering/Resolving]

NARRATIVE: CASE EVENT DATE: 20210610
